FAERS Safety Report 12984227 (Version 1)
Quarter: 2016Q4

REPORT INFORMATION
  Report Type: Spontaneous
  Country: FR (occurrence: FR)
  Receive Date: 20161129
  Receipt Date: 20161129
  Transmission Date: 20170207
  Serious: Yes (Death, Hospitalization, Other)
  Sender: FDA-Public Use
  Company Number: FR-ELI_LILLY_AND_COMPANY-FR201611006347

PATIENT
  Age: 68 Year
  Sex: Female

DRUGS (17)
  1. SOLUPRED                           /00016201/ [Concomitant]
     Active Substance: PREDNISOLONE
     Indication: PREMEDICATION
     Dosage: 1 DF, QD
     Route: 065
  2. CISPLATINE ACCORD [Suspect]
     Active Substance: CISPLATIN
     Indication: LUNG ADENOCARCINOMA METASTATIC
     Dosage: 54 MG, UNKNOWN
     Route: 042
     Dates: start: 20160908, end: 20160908
  3. COLCHICINE OPOCALCIUM [Suspect]
     Active Substance: COLCHICINE
     Indication: PERICARDITIS
     Dosage: 1 MG, QD
     Route: 048
     Dates: start: 201606, end: 20160914
  4. AERIUS                             /01009701/ [Concomitant]
     Active Substance: EBASTINE
     Dosage: 5 MG, UNKNOWN
     Route: 065
  5. METFORMINE [Concomitant]
     Active Substance: METFORMIN HYDROCHLORIDE
     Dosage: 3 DF, QD
     Route: 065
  6. SPECIAFOLDINE [Concomitant]
     Active Substance: FOLIC ACID
     Dosage: 1 DF, QD
     Route: 065
  7. CISPLATINE ACCORD [Suspect]
     Active Substance: CISPLATIN
     Dosage: 62 MG, UNKNOWN
     Route: 042
     Dates: start: 20160909, end: 20160909
  8. PANTOPRAZOLE [Concomitant]
     Active Substance: PANTOPRAZOLE SODIUM
     Dosage: 1 DF, QD
     Route: 065
  9. DUROGESIC [Concomitant]
     Active Substance: FENTANYL
     Dosage: 175 UG, OTHER EVERY 3 DAYS
     Route: 065
  10. ACTISKENAN [Concomitant]
     Active Substance: MORPHINE SULFATE
     Dosage: 1 DF, PRN
     Route: 065
  11. MOVICOL [Concomitant]
     Active Substance: POLYETHYLENE GLYCOL 3350\POTASSIUM CHLORIDE\SODIUM BICARBONATE\SODIUM CHLORIDE
     Dosage: UNK, UNKNOWN
     Route: 065
  12. SYMBICORT [Concomitant]
     Active Substance: BUDESONIDE\FORMOTEROL FUMARATE DIHYDRATE
     Dosage: UNK, UNKNOWN
     Route: 065
  13. ZOFRAN [Concomitant]
     Active Substance: ONDANSETRON HYDROCHLORIDE
     Indication: PREMEDICATION
     Dosage: 8 MG, UNKNOWN
     Route: 065
     Dates: start: 20160908
  14. ALIMTA [Suspect]
     Active Substance: PEMETREXED DISODIUM
     Indication: LUNG ADENOCARCINOMA METASTATIC
     Dosage: 780 MG, SINGLE
     Route: 042
     Dates: start: 20160908, end: 20160908
  15. INNOHEP [Concomitant]
     Active Substance: TINZAPARIN SODIUM
     Dosage: UNK, UNKNOWN
     Route: 065
  16. DAFALGAN [Concomitant]
     Active Substance: ACETAMINOPHEN
     Dosage: 500 MG, UNKNOWN
     Route: 065
  17. CRESTOR [Concomitant]
     Active Substance: ROSUVASTATIN CALCIUM
     Dosage: 10 MG, UNKNOWN
     Route: 065

REACTIONS (6)
  - Nausea [Unknown]
  - Decreased appetite [Unknown]
  - Pancytopenia [Fatal]
  - Acute kidney injury [Fatal]
  - Condition aggravated [Unknown]
  - Diarrhoea [Fatal]

NARRATIVE: CASE EVENT DATE: 20160912
